FAERS Safety Report 26043310 (Version 1)
Quarter: 2025Q4

REPORT INFORMATION
  Report Type: Report from Study
  Country: US (occurrence: None)
  Receive Date: 20251113
  Receipt Date: 20251113
  Transmission Date: 20260118
  Serious: Yes (Disabling, Other)
  Sender: UCB
  Company Number: US-UCBSA-2025071656

PATIENT

DRUGS (3)
  1. LACOSAMIDE [Suspect]
     Active Substance: LACOSAMIDE
     Indication: Epilepsy
     Dosage: 150 MILLIGRAM, 2X/DAY (BID)
  2. KEPPRA [Suspect]
     Active Substance: LEVETIRACETAM
     Indication: Epilepsy
     Dosage: 1750 MILLIGRAM (750MG AM AND 1000MG PM)
  3. NAYZILAM [Suspect]
     Active Substance: MIDAZOLAM
     Indication: Epilepsy
     Dosage: 5 MILLIGRAM (IN EACH NOSTRIL AS NEEDED)

REACTIONS (3)
  - Seizure [Recovered/Resolved]
  - Multiple sclerosis [Unknown]
  - Product use issue [Unknown]
